FAERS Safety Report 16867212 (Version 1)
Quarter: 2019Q3

REPORT INFORMATION
  Report Type: Spontaneous
  Country: US (occurrence: US)
  Receive Date: 20190930
  Receipt Date: 20190930
  Transmission Date: 20191005
  Serious: Yes (Hospitalization, Other)
  Sender: FDA-Public Use
  Company Number: US-AUROBINDO-AUR-APL-2019-062768

PATIENT
  Age: 54 Year
  Sex: Male

DRUGS (4)
  1. LOPINAVIR [Suspect]
     Active Substance: LOPINAVIR
     Indication: HIV INFECTION
     Dosage: UNK, FOR MANY YEARS
     Route: 065
  2. RITONAVIR. [Suspect]
     Active Substance: RITONAVIR
     Indication: HIV INFECTION
     Dosage: UNK FOR MANY YEARS
     Route: 065
  3. EMTRICITABINE [Suspect]
     Active Substance: EMTRICITABINE
     Indication: HIV INFECTION
     Dosage: UNK FOR MANY YEARS
     Route: 065
  4. TENOFOVIR DISOPROXIL FUMARATE. [Suspect]
     Active Substance: TENOFOVIR DISOPROXIL FUMARATE
     Indication: HIV INFECTION
     Dosage: UNK, FOR MANY YEARS
     Route: 065

REACTIONS (13)
  - Bone pain [Recovered/Resolved]
  - Rib fracture [Unknown]
  - Hypophosphataemia [Unknown]
  - Proteinuria [Recovered/Resolved]
  - Pubis fracture [Unknown]
  - Fanconi syndrome [Unknown]
  - Hypokalaemia [Unknown]
  - Osteomalacia [Unknown]
  - Metabolic acidosis [Unknown]
  - Vomiting [Unknown]
  - Myalgia [Recovered/Resolved]
  - Glycosuria [Recovered/Resolved]
  - Nausea [Unknown]
